FAERS Safety Report 5931836-3 (Version None)
Quarter: 2008Q4

REPORT INFORMATION
  Report Type: 
  Country: None (occurrence: None)
  Receive Date: 20081022
  Receipt Date: 20081013
  Transmission Date: 20090506
  Serious: Yes (Hospitalization)
  Sender: FDA-Public Use
  Company Number: 2008SP020846

PATIENT
  Age: 84 Year
  Sex: Male

DRUGS (5)
  1. NITRO-DUR (GLYCERYL TRINITRATE) (GLYCERYL TRINITRATE) (80 MCG) [Suspect]
     Indication: MYOCARDIAL ISCHAEMIA
     Dosage: 80 MG; TDER
     Dates: start: 20060101
  2. PANTOPRAZOLE SODIUM [Concomitant]
  3. COROPRES [Concomitant]
  4. MASDIL [Concomitant]
  5. SEGURIL [Concomitant]

REACTIONS (3)
  - CEREBROVASCULAR ACCIDENT [None]
  - HYPOKALAEMIA [None]
  - RENAL FAILURE [None]
